FAERS Safety Report 9398373 (Version 1)
Quarter: 2013Q3

REPORT INFORMATION
  Report Type: Spontaneous
  Country: US (occurrence: US)
  Receive Date: 20130712
  Receipt Date: 20130712
  Transmission Date: 20140515
  Serious: No
  Sender: FDA-Public Use
  Company Number: US-GLAXOSMITHKLINE-A1010629A

PATIENT
  Age: 60 Year
  Sex: Male

DRUGS (2)
  1. FLOVENT [Suspect]
     Indication: RESPIRATORY TRACT INFECTION VIRAL
     Dosage: 2PUFF PER DAY
     Route: 055
     Dates: start: 200702
  2. FLONASE [Concomitant]

REACTIONS (1)
  - Oropharyngeal pain [Recovered/Resolved]
